FAERS Safety Report 14509650 (Version 2)
Quarter: 2018Q1

REPORT INFORMATION
  Report Type: Spontaneous
  Country: AU (occurrence: AU)
  Receive Date: 20180209
  Receipt Date: 20180301
  Transmission Date: 20180509
  Serious: Yes (Death, Hospitalization)
  Sender: FDA-Public Use
  Company Number: AU-ACTELION-A-CH2018-166813

PATIENT
  Age: 62 Year
  Sex: Male
  Weight: 62.8 kg

DRUGS (3)
  1. SILDENAFIL. [Suspect]
     Active Substance: SILDENAFIL
     Indication: SYSTEMIC SCLERODERMA
     Dosage: 50 MG, TID
     Route: 048
     Dates: start: 20141001
  2. OPSUMIT [Suspect]
     Active Substance: MACITENTAN
     Indication: PULMONARY ARTERIAL HYPERTENSION
     Dosage: 10 MG, OD
     Route: 048
     Dates: start: 20150714, end: 20180129
  3. FUROSEMIDE. [Concomitant]
     Active Substance: FUROSEMIDE
     Indication: SYSTEMIC SCLERODERMA
     Dosage: 60 MG, OD
     Route: 048

REACTIONS (3)
  - Right ventricular failure [Fatal]
  - Cardiac arrest [Fatal]
  - Atrial flutter [Fatal]

NARRATIVE: CASE EVENT DATE: 20180125
